FAERS Safety Report 17929845 (Version 2)
Quarter: 2021Q1

REPORT INFORMATION
  Report Type: Spontaneous
  Country: CA (occurrence: CA)
  Receive Date: 20200623
  Receipt Date: 20210223
  Transmission Date: 20210419
  Serious: Yes (Other)
  Sender: FDA-Public Use
  Company Number: CA-MYLANLABS-2020M1056414

PATIENT
  Sex: Female

DRUGS (1)
  1. SYNTHROID [Suspect]
     Active Substance: LEVOTHYROXINE SODIUM
     Indication: HYPOTHYROIDISM
     Dosage: 0.025 MILLIGRAM, QD
     Route: 048
     Dates: start: 202005

REACTIONS (2)
  - Diarrhoea [Unknown]
  - Coeliac disease [Unknown]

NARRATIVE: CASE EVENT DATE: 2020
